FAERS Safety Report 5400854-6 (Version None)
Quarter: 2007Q3

REPORT INFORMATION
  Report Type: 
  Country: None (occurrence: None)
  Receive Date: 20070730
  Receipt Date: 20070510
  Transmission Date: 20080115
  Serious: No
  Sender: FDA-Public Use
  Company Number: A0648038A

PATIENT
  Sex: Female

DRUGS (2)
  1. IMITREX [Suspect]
     Indication: MIGRAINE
     Dosage: 50MG UNKNOWN
     Route: 048
  2. IMITREX [Suspect]
     Dosage: 10MG UNKNOWN
     Route: 045

REACTIONS (2)
  - DRUG INEFFECTIVE [None]
  - VOMITING [None]
